FAERS Safety Report 6306182-9 (Version None)
Quarter: 2009Q3

REPORT INFORMATION
  Report Type: 
  Country: None (occurrence: None)
  Receive Date: 20090810
  Receipt Date: 20090729
  Transmission Date: 20100115
  Serious: Yes (Other)
  Sender: FDA-Public Use
  Company Number: ALL1-2009-02098

PATIENT
  Sex: Female

DRUGS (1)
  1. MAS  (MIXED AMPHETAMINE SALTS) [Suspect]
     Indication: DRUG USE FOR UNKNOWN INDICATION
     Dosage: ORAL
     Route: 048

REACTIONS (1)
  - DIARRHOEA HAEMORRHAGIC [None]
